FAERS Safety Report 13998175 (Version 1)
Quarter: 2017Q3

REPORT INFORMATION
  Report Type: Spontaneous
  Country: KW (occurrence: KW)
  Receive Date: 20170921
  Receipt Date: 20170921
  Transmission Date: 20171128
  Serious: Yes (Death, Other)
  Sender: FDA-Public Use
  Company Number: KW-PFIZER INC-2017402295

PATIENT
  Age: 82 Year
  Sex: Female

DRUGS (10)
  1. MEROPENEM. [Concomitant]
     Active Substance: MEROPENEM
     Indication: STREPTOCOCCAL SEPSIS
     Dosage: 500 MG, EVERY 8 HOURS
     Route: 042
  2. PENICILLIN G [Suspect]
     Active Substance: PENICILLIN G
     Indication: SEPTIC ARTHRITIS STREPTOCOCCAL
     Dosage: REDUCED TO 2 MILLION IU, EVERY 6 HOURS
     Route: 042
  3. LINEZOLID. [Concomitant]
     Active Substance: LINEZOLID
     Indication: ARTHRITIS BACTERIAL
  4. DOPAMINE [Concomitant]
     Active Substance: DOPAMINE\DOPAMINE HYDROCHLORIDE
     Dosage: 5 UG/ML, UNK
  5. CLINDAMYCIN PHOSPHATE. [Suspect]
     Active Substance: CLINDAMYCIN PHOSPHATE
     Indication: STREPTOCOCCAL SEPSIS
     Dosage: 600 MG, EERY 8 HOURS
     Route: 042
  6. NOREPINEPHRINE BITARTRATE. [Concomitant]
     Active Substance: NOREPINEPHRINE BITARTRATE
     Dosage: 3 UG/ML, UNK
  7. LINEZOLID. [Concomitant]
     Active Substance: LINEZOLID
     Indication: STREPTOCOCCAL SEPSIS
     Dosage: 600 MG, EVERY 12 HOURS
     Route: 042
  8. CLINDAMYCIN PHOSPHATE. [Suspect]
     Active Substance: CLINDAMYCIN PHOSPHATE
     Indication: SEPTIC ARTHRITIS STAPHYLOCOCCAL
  9. PENICILLIN G [Suspect]
     Active Substance: PENICILLIN G
     Indication: STREPTOCOCCAL SEPSIS
     Dosage: 4 MILLION IU, EVERY 4 HRS
     Route: 042
  10. MEROPENEM. [Concomitant]
     Active Substance: MEROPENEM
     Indication: ARTHRITIS BACTERIAL

REACTIONS (1)
  - Drug ineffective [Fatal]
